FAERS Safety Report 7460388-4 (Version None)
Quarter: 2011Q2

REPORT INFORMATION
  Report Type: 
  Country: None (occurrence: None)
  Receive Date: 20110505
  Receipt Date: 20110428
  Transmission Date: 20111010
  Serious: Yes (Hospitalization)
  Sender: FDA-Public Use
  Company Number: A0924921A

PATIENT
  Age: 62 Year
  Sex: Female

DRUGS (6)
  1. ADVAIR DISKUS 100/50 [Suspect]
     Indication: CHRONIC OBSTRUCTIVE PULMONARY DISEASE
     Dosage: 1PUFF TWICE PER DAY
     Route: 055
  2. SPIRIVA [Concomitant]
  3. PREDNISONE [Concomitant]
     Route: 048
  4. CLARITIN [Concomitant]
  5. AZOR (AMLODIPINE BESILATE + OLMESARTAN MEDOXOMIL) [Concomitant]
  6. OXYGEN [Concomitant]

REACTIONS (3)
  - UPPER RESPIRATORY TRACT INFECTION [None]
  - CHRONIC OBSTRUCTIVE PULMONARY DISEASE [None]
  - DYSPNOEA [None]
